FAERS Safety Report 12659268 (Version 1)
Quarter: 2016Q3

REPORT INFORMATION
  Report Type: Spontaneous
  Country: US (occurrence: None)
  Receive Date: 20160816
  Receipt Date: 20160816
  Transmission Date: 20161109
  Serious: No
  Sender: FDA-Public Use
  Company Number: None

PATIENT
  Age: 67 Year

DRUGS (2)
  1. AFINITOR [Suspect]
     Active Substance: EVEROLIMUS
     Indication: BREAST CANCER FEMALE
  2. EXEMESTANE TAB 25MG [Suspect]
     Active Substance: EXEMESTANE

REACTIONS (6)
  - Noninfective gingivitis [None]
  - Ear pruritus [None]
  - Pruritus genital [None]
  - Eye pruritus [None]
  - Pain [None]
  - Stomatitis [None]

NARRATIVE: CASE EVENT DATE: 20160815
